FAERS Safety Report 5427126-8 (Version None)
Quarter: 2007Q3

REPORT INFORMATION
  Report Type: 
  Country: None (occurrence: None)
  Receive Date: 20070828
  Receipt Date: 20070822
  Transmission Date: 20080115
  Serious: Yes (Other)
  Sender: FDA-Public Use
  Company Number: PHNU2007DE02841

PATIENT
  Age: 47 Year
  Sex: Female

DRUGS (1)
  1. DICLOFENAC SODIUM [Suspect]
     Dosage: 1 DF, ONCE/SINGLE
     Dates: start: 20070717, end: 20070717

REACTIONS (3)
  - ACCOMMODATION DISORDER [None]
  - MYDRIASIS [None]
  - PUPIL FIXED [None]
